FAERS Safety Report 7957590-1 (Version None)
Quarter: 2011Q4

REPORT INFORMATION
  Report Type: 
  Country: None (occurrence: None)
  Receive Date: 20111205
  Receipt Date: 20111108
  Transmission Date: 20120403
  Serious: Yes (Other)
  Sender: FDA-Public Use
  Company Number: DE-GLAXOSMITHKLINE-D0073317A

PATIENT
  Sex: Male

DRUGS (6)
  1. METOPROLOL SUCCINATE [Concomitant]
     Route: 065
  2. TROBALT [Suspect]
     Indication: TEMPORAL LOBE EPILEPSY
     Dosage: 250MG THREE TIMES PER DAY
     Route: 048
  3. HYDROCHLOROTHIAZIDE [Concomitant]
     Dosage: 25MG PER DAY
     Route: 065
  4. ENALAPRIL MALEATE [Concomitant]
     Dosage: 2MG PER DAY
     Route: 065
  5. KEPPRA [Concomitant]
     Dosage: 2000MG PER DAY
     Route: 065
  6. AMLODIPINE [Concomitant]
     Dosage: 2.5MG PER DAY
     Route: 065

REACTIONS (3)
  - HALLUCINATION, AUDITORY [None]
  - CHROMATOPSIA [None]
  - DIPLOPIA [None]
